FAERS Safety Report 6382712-6 (Version None)
Quarter: 2009Q3

REPORT INFORMATION
  Report Type: 
  Country: None (occurrence: None)
  Receive Date: 20090930
  Receipt Date: 20090921
  Transmission Date: 20100115
  Serious: Yes (Other)
  Sender: FDA-Public Use
  Company Number: NL-TEVA-208560ISR

PATIENT
  Sex: Female

DRUGS (2)
  1. BECLOMETASONE [Suspect]
     Indication: ASTHMA
     Dates: start: 20070101
  2. ALBUTEROL [Suspect]
     Indication: ASTHMA
     Dates: start: 20060101

REACTIONS (2)
  - TOOTH DISCOLOURATION [None]
  - TOOTH DISORDER [None]
